FAERS Safety Report 24398579 (Version 1)
Quarter: 2024Q4

REPORT INFORMATION
  Report Type: Spontaneous
  Country: US (occurrence: None)
  Receive Date: 20241004
  Receipt Date: 20241004
  Transmission Date: 20250114
  Serious: No
  Sender: Public
  Company Number: None

PATIENT
  Age: 47 Year
  Sex: Male

DRUGS (9)
  1. XPHOZAH [Suspect]
     Active Substance: TENAPANOR HYDROCHLORIDE
     Indication: End stage renal disease
     Dosage: FREQUENCY : TWICE A DAY;?
     Route: 048
     Dates: start: 20240806, end: 20240819
  2. ALLOPURINOL [Concomitant]
     Active Substance: ALLOPURINOL
  3. DIALYVITE [Concomitant]
     Active Substance: ASCORBIC ACID\BIOTIN\CALCIUM PANTOTHENATE\COBALAMIN\FOLIC ACID\NIACINAMIDE\PYRIDOXINE HYDROCHLORIDE\
  4. divalproex 125mg sprinkles [Concomitant]
  5. lsosorbide Mono 30mg tablets [Concomitant]
  6. loratadine 10mg tablets [Concomitant]
  7. metoprolol ER Succ 100mg tablets [Concomitant]
  8. oxycodone 5mg tablets [Concomitant]
  9. oxycontin 10mg CR tablets [Concomitant]

REACTIONS (2)
  - Diarrhoea [None]
  - Therapy cessation [None]

NARRATIVE: CASE EVENT DATE: 20240805
